FAERS Safety Report 9423181 (Version 4)
Quarter: 2013Q4

REPORT INFORMATION
  Report Type: Report from Study
  Country: IL (occurrence: IL)
  Receive Date: 20130726
  Receipt Date: 20131120
  Transmission Date: 20140711
  Serious: Yes (Other)
  Sender: FDA-Public Use
  Company Number: PHHY2013IL079518

PATIENT
  Age: 74 Year
  Sex: Female

DRUGS (6)
  1. SANDOSTATIN LAR [Suspect]
     Indication: ACROMEGALY
     Dosage: 30 MG, 1Q3W
     Dates: start: 20101025
  2. SANDOSTATIN LAR [Suspect]
     Dosage: UNK UKN, UNK
     Dates: start: 20130725
  3. SANDOSTATIN LAR [Suspect]
     Dosage: UNK UKN, UNK
     Dates: start: 20130815
  4. SANDOSTATIN LAR [Suspect]
     Dosage: UNK UKN, UNK
     Dates: start: 20130930
  5. SANDOSTATIN LAR [Suspect]
     Dosage: UNK UKN, UNK
     Dates: start: 20131023
  6. AVASTIN [Suspect]
     Dosage: UNK UKN, UNK

REACTIONS (6)
  - Blindness [Unknown]
  - Vision blurred [Not Recovered/Not Resolved]
  - Thrombosis [Unknown]
  - Blood pressure systolic increased [Not Recovered/Not Resolved]
  - Venous occlusion [Unknown]
  - Eye haemorrhage [Unknown]
